FAERS Safety Report 25726823 (Version 3)
Quarter: 2025Q4

REPORT INFORMATION
  Report Type: Spontaneous
  Country: CA (occurrence: CA)
  Receive Date: 20250826
  Receipt Date: 20251002
  Transmission Date: 20260118
  Serious: No
  Sender: PFIZER
  Company Number: CA-PFIZER INC-202500045535

PATIENT
  Age: 42 Year
  Sex: Female
  Weight: 70 kg

DRUGS (3)
  1. IXIFI [Suspect]
     Active Substance: INFLIXIMAB-QBTX
     Indication: Colitis ulcerative
     Dosage: 400 MG,EVERY 6 WEEKS
     Route: 042
     Dates: start: 20250702
  2. IXIFI [Suspect]
     Active Substance: INFLIXIMAB-QBTX
     Dosage: 700 MG, 7 WEEKS AND 1 DAY (400 MG,EVERY 6 WEEK)
     Route: 042
     Dates: start: 20250821
  3. IXIFI [Suspect]
     Active Substance: INFLIXIMAB-QBTX
     Dosage: 700 MG 4 WEEKS AND 6 DAYS (400 MG,EVERY 6 WEEKS)
     Route: 042
     Dates: start: 20250924

REACTIONS (3)
  - Condition aggravated [Recovering/Resolving]
  - Fatigue [Not Recovered/Not Resolved]
  - Off label use [Unknown]

NARRATIVE: CASE EVENT DATE: 20250101
